FAERS Safety Report 7813890-7 (Version None)
Quarter: 2011Q4

REPORT INFORMATION
  Report Type: 
  Country: None (occurrence: None)
  Receive Date: 20111014
  Receipt Date: 20111005
  Transmission Date: 20120403
  Serious: Yes (Other)
  Sender: FDA-Public Use
  Company Number: FR-JNJFOC-20111004349

PATIENT
  Sex: Female

DRUGS (1)
  1. XARELTO [Suspect]
     Indication: JOINT PROSTHESIS USER
     Route: 048
     Dates: start: 20110209, end: 20110211

REACTIONS (1)
  - BLOOD CREATININE INCREASED [None]
